FAERS Safety Report 6739707-X (Version None)
Quarter: 2010Q2

REPORT INFORMATION
  Report Type: 
  Country: None (occurrence: None)
  Receive Date: 20100525
  Receipt Date: 20100517
  Transmission Date: 20101027
  Serious: Yes (Other)
  Sender: FDA-Public Use
  Company Number: FR-ROCHE-704150

PATIENT
  Age: 3 Day
  Sex: Female

DRUGS (4)
  1. INVIRASE [Suspect]
     Indication: HIV TEST POSITIVE
     Route: 064
     Dates: start: 20090623
  2. NORVIR [Suspect]
     Indication: HIV TEST POSITIVE
  3. COMBIVIR [Suspect]
     Indication: HIV TEST POSITIVE
  4. RETROVIR [Suspect]
     Indication: PROPHYLAXIS

REACTIONS (1)
  - MITOCHONDRIAL CYTOPATHY [None]
